FAERS Safety Report 4294638-2 (Version None)
Quarter: 2004Q1

REPORT INFORMATION
  Report Type: 
  Country: None (occurrence: None)
  Receive Date: 20040213
  Receipt Date: 20040206
  Transmission Date: 20041129
  Serious: Yes (Disabling)
  Sender: FDA-Public Use
  Company Number: WAES 0402DNK00014

PATIENT
  Age: 28 Year
  Sex: Female
  Weight: 62 kg

DRUGS (4)
  1. ACETAMINOPHEN [Concomitant]
     Route: 048
     Dates: start: 20020101, end: 20030101
  2. OMEPRAZOLE [Concomitant]
     Route: 048
     Dates: start: 19980101, end: 20030101
  3. VIOXX [Suspect]
     Indication: INTERVERTEBRAL DISC PROTRUSION
     Route: 048
     Dates: start: 20010924, end: 20031201
  4. VIOXX [Suspect]
     Indication: BACK PAIN
     Route: 048
     Dates: start: 20010924, end: 20031201

REACTIONS (8)
  - ABDOMINAL DISCOMFORT [None]
  - DEPRESSION [None]
  - FATIGUE [None]
  - HEADACHE [None]
  - MEMORY IMPAIRMENT [None]
  - MUSCLE CRAMP [None]
  - UPPER RESPIRATORY TRACT INFLAMMATION [None]
  - VAGINAL MYCOSIS [None]
